APPROVED DRUG PRODUCT: CARAC
Active Ingredient: FLUOROURACIL
Strength: 0.5%
Dosage Form/Route: CREAM;TOPICAL
Application: N020985 | Product #001
Applicant: EXTROVIS AG
Approved: Oct 27, 2000 | RLD: Yes | RS: Yes | Type: RX